FAERS Safety Report 16408730 (Version 1)
Quarter: 2019Q2

REPORT INFORMATION
  Report Type: Report from Study
  Country: GB (occurrence: GB)
  Receive Date: 20190610
  Receipt Date: 20190610
  Transmission Date: 20190711
  Serious: Yes (Other)
  Sender: FDA-Public Use
  Company Number: PHHY2015GB042567

PATIENT
  Age: 47 Year
  Sex: Female

DRUGS (1)
  1. GILENYA [Suspect]
     Active Substance: FINGOLIMOD HYDROCHLORIDE
     Indication: MULTIPLE SCLEROSIS
     Dosage: UNK, QD
     Route: 048
     Dates: start: 20131219, end: 20140801

REACTIONS (22)
  - Arthralgia [Recovered/Resolved]
  - Hypoaesthesia [Recovered/Resolved]
  - Musculoskeletal pain [Unknown]
  - Palpitations [Unknown]
  - Cough [Unknown]
  - Bronchitis chronic [Unknown]
  - Hypoaesthesia [Unknown]
  - Sensory disturbance [Recovered/Resolved]
  - Pain [Unknown]
  - Fatigue [Unknown]
  - Gait disturbance [Unknown]
  - Emphysema [Unknown]
  - Dyspnoea exertional [Unknown]
  - Hyperventilation [Unknown]
  - Jaundice [Unknown]
  - Hepatitis [Recovered/Resolved]
  - Muscular weakness [Unknown]
  - Sensory disturbance [Unknown]
  - Pain in extremity [Unknown]
  - Heart rate irregular [Unknown]
  - Burning sensation [Unknown]
  - Non-cardiac chest pain [Unknown]

NARRATIVE: CASE EVENT DATE: 20140801
